FAERS Safety Report 21771262 (Version 3)
Quarter: 2023Q1

REPORT INFORMATION
  Report Type: Spontaneous
  Country: US (occurrence: US)
  Receive Date: 20221223
  Receipt Date: 20230125
  Transmission Date: 20230417
  Serious: No
  Sender: FDA-Public Use
  Company Number: US-UNITED THERAPEUTICS-UNT-2022-031484

PATIENT
  Age: 59 Year
  Sex: Female

DRUGS (3)
  1. ORENITRAM [Suspect]
     Active Substance: TREPROSTINIL
     Indication: Pulmonary arterial hypertension
     Dosage: 0.375 MG, TID
     Route: 048
     Dates: start: 202212
  2. ORENITRAM [Suspect]
     Active Substance: TREPROSTINIL
     Dosage: 0.875 MG, TID
     Route: 048
  3. ORENITRAM [Suspect]
     Active Substance: TREPROSTINIL
     Dosage: UNK
     Route: 048
     Dates: start: 20221206

REACTIONS (6)
  - Bacterial infection [Unknown]
  - Diarrhoea [Unknown]
  - Flushing [Unknown]
  - Dry eye [Unknown]
  - Middle insomnia [Unknown]
  - Feeling hot [Unknown]

NARRATIVE: CASE EVENT DATE: 20221201
